FAERS Safety Report 13828189 (Version 2)
Quarter: 2020Q3

REPORT INFORMATION
  Report Type: Report from Study
  Country: UA (occurrence: UA)
  Receive Date: 20170803
  Receipt Date: 20180504
  Transmission Date: 20201105
  Serious: Yes (Hospitalization)
  Sender: FDA-Public Use
  Company Number: UA-ASTRAZENECA-2016SF08609

PATIENT
  Age: 22128 Day
  Sex: Male

DRUGS (16)
  1. TREMELIMUMAB. [Suspect]
     Active Substance: TREMELIMUMAB
     Indication: NON-SMALL CELL LUNG CANCER
     Dosage: 1 MG/KG EVERY FOUR WEEK
     Route: 042
     Dates: start: 20160516, end: 20160516
  2. TREMELIMUMAB. [Suspect]
     Active Substance: TREMELIMUMAB
     Indication: NON-SMALL CELL LUNG CANCER
     Dosage: 1 MG/KG EVERY FOUR WEEK
     Route: 042
     Dates: start: 20160713, end: 20160713
  3. MEDI4736 [Suspect]
     Active Substance: DURVALUMAB
     Indication: NON-SMALL CELL LUNG CANCER
     Dosage: 20 MG/KG EVERY FOUR WEEK
     Route: 042
     Dates: start: 20160907, end: 20160907
  4. ARGININE GLUTAMATE [Concomitant]
     Active Substance: ARGININE GLUTAMATE
     Indication: HEPATITIS
     Dosage: 0.08 MG QD
     Route: 042
     Dates: start: 20161013, end: 20161018
  5. DIPHENHYDRAMINE. [Concomitant]
     Active Substance: DIPHENHYDRAMINE
     Indication: PREMEDICATION
     Dosage: 10 MG EVERY FOUR WEEK
     Route: 042
     Dates: start: 20160516, end: 20160810
  6. MEDI4736 [Suspect]
     Active Substance: DURVALUMAB
     Indication: NON-SMALL CELL LUNG CANCER
     Dosage: 20 MG/KG EVERY FOUR WEEK
     Route: 042
     Dates: start: 20160615, end: 20160615
  7. TREMELIMUMAB. [Suspect]
     Active Substance: TREMELIMUMAB
     Indication: NON-SMALL CELL LUNG CANCER
     Dosage: 1 MG/KG EVERY FOUR WEEK
     Route: 042
     Dates: start: 20160615, end: 20160615
  8. MEDI4736 [Suspect]
     Active Substance: DURVALUMAB
     Indication: NON-SMALL CELL LUNG CANCER
     Dosage: 20 MG/KG EVERY FOUR WEEK
     Route: 042
     Dates: start: 20160810, end: 20160810
  9. MEDI4736 [Suspect]
     Active Substance: DURVALUMAB
     Indication: NON-SMALL CELL LUNG CANCER
     Dosage: 1500.0MG ONCE/SINGLE ADMINISTRATION
     Route: 042
     Dates: start: 20161027, end: 20161027
  10. TREMELIMUMAB. [Suspect]
     Active Substance: TREMELIMUMAB
     Indication: NON-SMALL CELL LUNG CANCER
     Dosage: 1 MG/KG EVERY FOUR WEEK
     Route: 042
     Dates: start: 20160810, end: 20160810
  11. PHOSPHOLIPIDS [Concomitant]
     Active Substance: OMEGA-3 FATTY ACIDS
     Indication: HEPATITIS
     Dosage: 600 MG TID
     Route: 042
     Dates: start: 20160907, end: 20160920
  12. ADEMETIONINE [Concomitant]
     Active Substance: ADEMETIONINE
     Indication: HEPATITIS
     Dosage: 400.00 MG BID
     Route: 048
     Dates: start: 20161005, end: 20161030
  13. ENTEROSGEL [Concomitant]
     Indication: HEPATITIS
     Dosage: 1.00 TABLE SPOON TID
     Route: 048
     Dates: start: 20161005, end: 20161012
  14. MEDI4736 [Suspect]
     Active Substance: DURVALUMAB
     Indication: NON-SMALL CELL LUNG CANCER
     Dosage: 20 MG/KG EVERY FOUR WEEK
     Route: 042
     Dates: start: 20160516, end: 20160516
  15. PHOSPHOLIPIDS [Concomitant]
     Active Substance: OMEGA-3 FATTY ACIDS
     Indication: HEPATITIS
     Dosage: 250.00 MG QD
     Route: 042
     Dates: start: 20161005, end: 20161009
  16. MEDI4736 [Suspect]
     Active Substance: DURVALUMAB
     Indication: NON-SMALL CELL LUNG CANCER
     Dosage: 20 MG/KG EVERY FOUR WEEK
     Route: 042
     Dates: start: 20160711, end: 20160711

REACTIONS (1)
  - Immune-mediated hepatitis [Recovered/Resolved]

NARRATIVE: CASE EVENT DATE: 20160905
